FAERS Safety Report 21370564 (Version 1)
Quarter: 2022Q3

REPORT INFORMATION
  Report Type: Spontaneous
  Country: US (occurrence: US)
  Receive Date: 20220923
  Receipt Date: 20220923
  Transmission Date: 20221027
  Serious: No
  Sender: FDA-Public Use
  Company Number: US-SANOFI-01282100

PATIENT
  Age: 85 Year
  Sex: Male

DRUGS (1)
  1. TOUJEO MAX [Suspect]
     Active Substance: INSULIN GLARGINE
     Indication: Type 2 diabetes mellitus
     Dosage: 10 UNITS AND DRUG TREATMENT DURATION:SINCE 2019., BID TOUJEO MAX 300 U/ML SOLOSTAR PREFILLED PEN

REACTIONS (1)
  - Inappropriate schedule of product administration [Unknown]
